FAERS Safety Report 8064757-3 (Version None)
Quarter: 2012Q1

REPORT INFORMATION
  Report Type: 
  Country: None (occurrence: None)
  Receive Date: 20120124
  Receipt Date: 20120110
  Transmission Date: 20120608
  Serious: Yes (Life-Threatening)
  Sender: FDA-Public Use
  Company Number: LK-RANBAXY-2011R3-51307

PATIENT
  Age: 25 Year
  Sex: Male

DRUGS (4)
  1. OMEPRAZOLE [Concomitant]
     Indication: PRODUCT USED FOR UNKNOWN INDICATION
     Dosage: UNK
     Route: 065
  2. DICLOFENAC SODIUM [Concomitant]
     Indication: PRODUCT USED FOR UNKNOWN INDICATION
     Dosage: UNK
     Route: 065
  3. AMOXICILLIN AND CLAVULANATE POTASSIUM [Suspect]
     Indication: PREOPERATIVE CARE
     Dosage: 1.2 G, TID
     Route: 042
     Dates: start: 20111119, end: 20111119
  4. ACETAMINOPHEN [Concomitant]
     Indication: PRODUCT USED FOR UNKNOWN INDICATION
     Dosage: UNK
     Route: 065

REACTIONS (7)
  - PERIPHERAL COLDNESS [None]
  - HYPERHIDROSIS [None]
  - ANAPHYLACTIC REACTION [None]
  - DYSPNOEA [None]
  - BLOOD PRESSURE IMMEASURABLE [None]
  - MENTAL STATUS CHANGES [None]
  - PULSE ABSENT [None]
